FAERS Safety Report 8860920 (Version 1)
Quarter: 2012Q4

REPORT INFORMATION
  Report Type: 
  Country: US (occurrence: US)
  Receive Date: 20121025
  Receipt Date: 20121025
  Transmission Date: 20130627
  Serious: Yes (Other)
  Sender: FDA-Public Use
  Company Number: CHPA2012US022082

PATIENT
  Age: 77 Year
  Sex: Female

DRUGS (2)
  1. EXCEDRIN EXTRA STRENGTH [Suspect]
     Indication: BURSITIS
     Dosage: 1 to 3 Unk, PRN
     Route: 048
  2. DRUG THERAPY NOS [Concomitant]
     Indication: BLOOD PRESSURE
     Dosage: Unk, Unk

REACTIONS (6)
  - Diabetes mellitus [Not Recovered/Not Resolved]
  - Thyroid disorder [Recovered/Resolved]
  - Pneumonia [Recovered/Resolved]
  - Off label use [Unknown]
  - Underdose [Unknown]
  - Incorrect dose administered [Unknown]
